FAERS Safety Report 16933659 (Version 2)
Quarter: 2019Q4

REPORT INFORMATION
  Report Type: Spontaneous
  Country: PL (occurrence: PL)
  Receive Date: 20191018
  Receipt Date: 20191113
  Transmission Date: 20200122
  Serious: Yes (Other)
  Sender: FDA-Public Use
  Company Number: PL-ROCHE-2436117

PATIENT
  Sex: Male

DRUGS (7)
  1. PRESTARIUM CO [Concomitant]
  2. DIAPREL [Concomitant]
     Active Substance: GLICLAZIDE
  3. DIUVER [Concomitant]
     Active Substance: TORSEMIDE
  4. SPIRONOL [Concomitant]
     Active Substance: SPIRONOLACTONE
  5. BETALOC ZOK [Concomitant]
     Active Substance: METOPROLOL SUCCINATE
  6. METFORMAX [Concomitant]
     Active Substance: METFORMIN HYDROCHLORIDE
  7. PIRFENIDONE. [Suspect]
     Active Substance: PIRFENIDONE
     Indication: IDIOPATHIC PULMONARY FIBROSIS
     Route: 065

REACTIONS (9)
  - Chest discomfort [Unknown]
  - Bladder papilloma [Unknown]
  - Coronary artery stenosis [Unknown]
  - Pneumonia [Unknown]
  - Atrial fibrillation [Unknown]
  - Exertional headache [Unknown]
  - Urinary tract infection [Unknown]
  - Renal failure [Unknown]
  - Exercise tolerance decreased [Recovering/Resolving]

NARRATIVE: CASE EVENT DATE: 2019
